FAERS Safety Report 10155811 (Version 1)
Quarter: 2014Q2

REPORT INFORMATION
  Report Type: Spontaneous
  Country: US (occurrence: US)
  Receive Date: 20140506
  Receipt Date: 20140506
  Transmission Date: 20141212
  Serious: Yes (Other)
  Sender: FDA-Public Use
  Company Number: US-ABBVIE-14P-163-1231573-00

PATIENT
  Age: 49 Year
  Sex: Male

DRUGS (1)
  1. ANDROGEL [Suspect]
     Indication: BLOOD TESTOSTERONE DECREASED

REACTIONS (6)
  - Pulmonary embolism [Unknown]
  - Physical disability [Unknown]
  - Emotional distress [Unknown]
  - Impaired work ability [Unknown]
  - Pain [Unknown]
  - Anxiety [Unknown]
